FAERS Safety Report 19614442 (Version 1)
Quarter: 2021Q3

REPORT INFORMATION
  Report Type: Spontaneous
  Country: US (occurrence: US)
  Receive Date: 20210727
  Receipt Date: 20210727
  Transmission Date: 20211014
  Serious: No
  Sender: FDA-Public Use
  Company Number: US-ASTRAZENECA-2021A607614

PATIENT
  Sex: Male

DRUGS (1)
  1. SYMBICORT [Suspect]
     Active Substance: BUDESONIDE\FORMOTEROL FUMARATE DIHYDRATE
     Dosage: 1 PUFF DAILY
     Route: 055

REACTIONS (5)
  - Device use issue [Unknown]
  - Oropharyngeal discomfort [Unknown]
  - Mouth swelling [Unknown]
  - Dysphagia [Unknown]
  - Hypersensitivity [Unknown]
